FAERS Safety Report 7814230-X (Version None)
Quarter: 2011Q4

REPORT INFORMATION
  Report Type: 
  Country: None (occurrence: None)
  Receive Date: 20111012
  Receipt Date: 20110930
  Transmission Date: 20120403
  Serious: Yes (Life-Threatening, Hospitalization)
  Sender: FDA-Public Use
  Company Number: 1000023430

PATIENT
  Age: 70 Year
  Sex: Female
  Weight: 73 kg

DRUGS (4)
  1. SPIRIVA RESPIMAT (TIOTROPIUM BROMIDE) [Concomitant]
  2. ROFLUMILAST (ROFLUMILAST) [Suspect]
     Indication: CHRONIC OBSTRUCTIVE PULMONARY DISEASE
     Dosage: 500 MCG, ORAL
     Route: 048
     Dates: start: 20110126, end: 20110614
  3. SYMBICORT (BUDESONIDE W/FORMOTEROL FUMRATE, FORMOTEROL FUMARATE) [Concomitant]
  4. THEOPHYLLINE [Suspect]
     Indication: CHRONIC OBSTRUCTIVE PULMONARY DISEASE
     Dosage: 6 DOSAGE FORMS (2 DOSAGE FORMS,3 IN 1 D),ORAL
     Route: 048
     Dates: start: 20110614, end: 20110101

REACTIONS (3)
  - TACHYARRHYTHMIA [None]
  - SYNCOPE [None]
  - HYPERTHYROIDISM [None]
